FAERS Safety Report 6855718-8 (Version None)
Quarter: 2010Q3

REPORT INFORMATION
  Report Type: 
  Country: None (occurrence: None)
  Receive Date: 20100719
  Receipt Date: 20090803
  Transmission Date: 20110219
  Serious: No
  Sender: FDA-Public Use
  Company Number: US-KINGPHARMUSA00001-K200900919

PATIENT
  Age: 78 Year
  Sex: Female

DRUGS (2)
  1. LEVOXYL [Suspect]
     Dosage: UNK
  2. PLAVIX [Suspect]
     Indication: VASCULAR GRAFT
     Dosage: 75 MG, QD
     Route: 048
     Dates: start: 20050101

REACTIONS (5)
  - ABASIA [None]
  - ABDOMINAL PAIN [None]
  - BACK PAIN [None]
  - BURNING SENSATION [None]
  - FEELING ABNORMAL [None]
